FAERS Safety Report 6394062-2 (Version None)
Quarter: 2009Q4

REPORT INFORMATION
  Report Type: 
  Country: None (occurrence: None)
  Receive Date: 20091008
  Receipt Date: 20090930
  Transmission Date: 20100525
  Serious: Yes (Life-Threatening)
  Sender: FDA-Public Use
  Company Number: US-GENENTECH-286909

PATIENT
  Sex: Female

DRUGS (6)
  1. RITUXAN [Suspect]
     Indication: MONONEURITIS
     Dosage: 800 MG, 1/WEEK
     Route: 042
     Dates: start: 20041201
  2. RITUXAN [Suspect]
     Indication: SJOGREN'S SYNDROME
     Dosage: UNK
     Dates: start: 20051201
  3. CELLCEPT [Concomitant]
     Indication: MONONEUROPATHY MULTIPLEX
     Dosage: UNK
     Route: 048
     Dates: start: 20050101, end: 20080701
  4. METHOTREXATE [Concomitant]
     Indication: DRUG USE FOR UNKNOWN INDICATION
     Dosage: UNK
  5. PREDNISONE [Concomitant]
     Indication: MONONEUROPATHY MULTIPLEX
     Dosage: 20 MG, QD
     Route: 048
     Dates: start: 19990101
  6. CYTOXAN [Concomitant]
     Indication: MONONEUROPATHY MULTIPLEX
     Dosage: UNK
     Route: 042
     Dates: start: 20041201, end: 20050401

REACTIONS (1)
  - PROGRESSIVE MULTIFOCAL LEUKOENCEPHALOPATHY [None]
